FAERS Safety Report 6165451-6 (Version None)
Quarter: 2009Q2

REPORT INFORMATION
  Report Type: 
  Country: None (occurrence: None)
  Receive Date: 20090423
  Receipt Date: 20090414
  Transmission Date: 20091009
  Serious: No
  Sender: FDA-Public Use
  Company Number: US-B.I. PHARMACEUTICALS,INC./RIDGEFIELD-2009-BP-04897BP

PATIENT
  Sex: Female

DRUGS (6)
  1. COMBIVENT [Suspect]
     Indication: EMPHYSEMA
     Dosage: 9PUF
     Route: 055
     Dates: start: 20060101
  2. QVAR 40 [Concomitant]
     Indication: EMPHYSEMA
  3. PROAIR HFA [Concomitant]
     Indication: EMPHYSEMA
  4. COZAAR [Concomitant]
     Indication: HYPERTENSION
  5. NITROGLYCERIN [Concomitant]
     Indication: HEART RATE INCREASED
  6. LOPRESSOR [Concomitant]
     Indication: HYPERTENSION

REACTIONS (2)
  - DYSPNOEA [None]
  - MIDDLE INSOMNIA [None]
